FAERS Safety Report 9556349 (Version 2)
Quarter: 2013Q3

REPORT INFORMATION
  Report Type: Spontaneous
  Country: BR (occurrence: BR)
  Receive Date: 20130926
  Receipt Date: 20130926
  Transmission Date: 20140515
  Serious: Yes (Other)
  Sender: FDA-Public Use
  Company Number: BR-SANOFI-AVENTIS-2012SA082836

PATIENT
  Age: 25 Year
  Sex: Female
  Weight: 65 kg

DRUGS (4)
  1. CLEXANE [Suspect]
     Indication: PROPHYLAXIS OF ABORTION
     Dosage: STRENGTH: 60 MG
     Route: 058
     Dates: start: 201211, end: 20121108
  2. CLEXANE [Suspect]
     Indication: PROPHYLAXIS OF ABORTION
     Dosage: STRENGTH: 20 MG
     Route: 058
     Dates: start: 20121108
  3. PROGESTAN [Concomitant]
     Indication: PROPHYLAXIS
     Route: 048
     Dates: start: 2012, end: 2012
  4. FOLIC ACID [Concomitant]
     Indication: NUTRITIONAL SUPPLEMENTATION
     Route: 048
     Dates: start: 201206

REACTIONS (3)
  - Abortion spontaneous [Unknown]
  - Exposure during pregnancy [Unknown]
  - Injection site haematoma [Recovered/Resolved]
